FAERS Safety Report 21983473 (Version 2)
Quarter: 2023Q1

REPORT INFORMATION
  Report Type: Spontaneous
  Country: US (occurrence: US)
  Receive Date: 20230213
  Receipt Date: 20230220
  Transmission Date: 20230417
  Serious: Yes (Other)
  Sender: FDA-Public Use
  Company Number: US-UROGEN PHARMA LTD.-2023-UGN-000016

PATIENT

DRUGS (6)
  1. JELMYTO [Suspect]
     Active Substance: MITOMYCIN
     Indication: Transitional cell cancer of the renal pelvis and ureter
     Dosage: 8 MILLILITER (INSTILLATION)
     Dates: start: 20220726, end: 20220726
  2. JELMYTO [Suspect]
     Active Substance: MITOMYCIN
     Dosage: 8 MILLILITER (INSTILLATION)
  3. JELMYTO [Suspect]
     Active Substance: MITOMYCIN
     Dosage: 8 MILLILITER (INSTILLATION)
  4. JELMYTO [Suspect]
     Active Substance: MITOMYCIN
     Dosage: 8 MILLILITER (INSTILLATION)
  5. JELMYTO [Suspect]
     Active Substance: MITOMYCIN
     Dosage: 8 MILLILITER (INSTILLATION)
  6. JELMYTO [Suspect]
     Active Substance: MITOMYCIN
     Dosage: 8 MILLILITER (INSTILLATION)
     Dates: start: 20220816, end: 20220816

REACTIONS (2)
  - Kidney fibrosis [Unknown]
  - Condition aggravated [Unknown]

NARRATIVE: CASE EVENT DATE: 20230120
